FAERS Safety Report 17420657 (Version 1)
Quarter: 2020Q1

REPORT INFORMATION
  Report Type: Report from Study
  Country: SG (occurrence: SG)
  Receive Date: 20200214
  Receipt Date: 20200214
  Transmission Date: 20200409
  Serious: Yes (Hospitalization)
  Sender: FDA-Public Use
  Company Number: SG-JNJFOC-20200209584

PATIENT
  Age: 62 Year
  Sex: Female
  Weight: 46 kg

DRUGS (13)
  1. HYPROMELLOSE [Concomitant]
     Active Substance: HYPROMELLOSES
     Indication: DRY EYE
     Dosage: 1 DROP TO BOTH TDS PRN FOR 28 DAYS
     Route: 047
  2. UREA. [Concomitant]
     Active Substance: UREA
     Indication: DRY SKIN
     Dosage: 1 APPLICATION, FOR 28 DAYS
     Route: 061
  3. OMEPRAZOLE. [Concomitant]
     Active Substance: OMEPRAZOLE
     Dosage: OM, FOR 28 DAYS
     Route: 048
  4. METOCLOPRAMIDE HCL [Concomitant]
     Active Substance: METOCLOPRAMIDE HYDROCHLORIDE
     Indication: NAUSEA
     Dosage: FOR 3 DAYS
     Route: 048
  5. SIMPONI [Suspect]
     Active Substance: GOLIMUMAB
     Indication: RHEUMATOID ARTHRITIS
     Route: 058
     Dates: start: 20181120
  6. SIMVASTATIN. [Concomitant]
     Active Substance: SIMVASTATIN
     Dosage: ON FOR 28 DAYS
     Route: 048
  7. METOCLOPRAMIDE HCL [Concomitant]
     Active Substance: METOCLOPRAMIDE HYDROCHLORIDE
     Indication: VOMITING
  8. LEFLUNOMIDE. [Concomitant]
     Active Substance: LEFLUNOMIDE
     Dosage: 1 TIME PER WEEK FOR 28 DAYS
     Route: 048
  9. PREDNISOLONE. [Concomitant]
     Active Substance: PREDNISOLONE
     Dosage: OM, FOR 28 DAYS
     Route: 048
  10. PARACETAMOL [Concomitant]
     Active Substance: ACETAMINOPHEN
     Indication: PYREXIA
  11. NYSTATIN. [Concomitant]
     Active Substance: NYSTATIN
     Dosage: 100,000 UNIT/ML FOR 6 DAYS
     Route: 048
  12. CALCIUM CARBOXYMETHYLCELLULOSE [Concomitant]
     Dosage: VITAMIN 200 UNIT TABLET FOR 28 DAYS
     Route: 048
  13. PARACETAMOL [Concomitant]
     Active Substance: ACETAMINOPHEN
     Indication: PAIN
     Dosage: FOR 5 DAYS
     Route: 048

REACTIONS (2)
  - Influenza [Recovered/Resolved]
  - Gastroenteritis [Recovered/Resolved]

NARRATIVE: CASE EVENT DATE: 20191221
